FAERS Safety Report 6767536-X (Version None)
Quarter: 2010Q2

REPORT INFORMATION
  Report Type: 
  Country: None (occurrence: None)
  Receive Date: 20100614
  Receipt Date: 20100603
  Transmission Date: 20101027
  Serious: Yes (Hospitalization, Other)
  Sender: FDA-Public Use
  Company Number: DE-BRISTOL-MYERS SQUIBB COMPANY-15087430

PATIENT
  Age: 65 Year
  Sex: Male
  Weight: 92 kg

DRUGS (4)
  1. ERBITUX [Suspect]
     Indication: RECTAL CANCER METASTATIC
     Dosage: 1DF-800 MG ON DAY 1 OF EACH CYCLE,500 MG ON DAY 8,15,22,29 AND 36 OF EACH CYCLE.RECENT:21JAN10
     Route: 042
     Dates: start: 20090415
  2. FOLINIC ACID [Suspect]
     Indication: RECTAL CANCER METASTATIC
     Dosage: ON DAY 1,8,15,22129 AND 36 OF EACH CYCLE RECENT:21JAN10
     Route: 042
     Dates: start: 20090415
  3. FLUOROURACIL [Suspect]
     Indication: RECTAL CANCER METASTATIC
     Dosage: ON DAYS 1,8,15,22,29,36 OF EACH CYCLE RECENT:21JAN10
     Route: 042
     Dates: start: 20090415
  4. IRINOTECAN HCL [Suspect]
     Indication: RECTAL CANCER METASTATIC
     Dosage: ON DAYS 1,8,15,22,29,36 OF EACH CYCLE RECENT:21JAN10
     Route: 042
     Dates: start: 20090415

REACTIONS (1)
  - PNEUMONIA [None]
